FAERS Safety Report 4611291-6 (Version None)
Quarter: 2005Q2

REPORT INFORMATION
  Report Type: 
  Country: None (occurrence: None)
  Receive Date: 20050311
  Receipt Date: 20041129
  Transmission Date: 20051028
  Serious: No
  Sender: FDA-Public Use
  Company Number: 2004-BP-10859BP

PATIENT
  Age: 10 Year
  Sex: Female

DRUGS (6)
  1. SPIRIVA [Suspect]
     Indication: ASTHMA
     Dosage: 18 MCG (18 MCG),IH
     Dates: start: 20040928, end: 20041020
  2. SPIRIVA [Suspect]
     Indication: VOCAL CORD DISORDER
     Dosage: 18 MCG (18 MCG),IH
     Dates: start: 20040928, end: 20041020
  3. ADVAIR DISKUS 100/50 [Suspect]
  4. MAXAIR [Concomitant]
  5. XOPENEX [Concomitant]
  6. PULMICORT [Concomitant]

REACTIONS (4)
  - CHEST PAIN [None]
  - CONSTIPATION [None]
  - STOMACH DISCOMFORT [None]
  - THROAT IRRITATION [None]
